FAERS Safety Report 6249274-5 (Version None)
Quarter: 2009Q2

REPORT INFORMATION
  Report Type: 
  Country: None (occurrence: None)
  Receive Date: 20090629
  Receipt Date: 20090617
  Transmission Date: 20091009
  Serious: Yes (Hospitalization, Disabling, Other)
  Sender: FDA-Public Use
  Company Number: US-MERCK-0808USA02335

PATIENT
  Age: 57 Year
  Sex: Male
  Weight: 73 kg

DRUGS (1)
  1. FOSAMAX [Suspect]
     Indication: OSTEOPOROSIS
     Route: 048
     Dates: start: 20030101, end: 20070101

REACTIONS (16)
  - BACK PAIN [None]
  - BLOOD PRESSURE FLUCTUATION [None]
  - CHRONIC OBSTRUCTIVE PULMONARY DISEASE [None]
  - DEPRESSION [None]
  - DYSPNOEA [None]
  - EATING DISORDER [None]
  - EMPHYSEMA [None]
  - EXOSTOSIS [None]
  - HYPOAESTHESIA ORAL [None]
  - IMPAIRED HEALING [None]
  - NASOPHARYNGITIS [None]
  - OSTEONECROSIS [None]
  - PAIN [None]
  - RESPIRATORY TRACT INFECTION [None]
  - TOOTH ABSCESS [None]
  - WEIGHT DECREASED [None]
